FAERS Safety Report 18688628 (Version 5)
Quarter: 2022Q1

REPORT INFORMATION
  Report Type: Report from Study
  Country: US (occurrence: US)
  Receive Date: 20201231
  Receipt Date: 20220312
  Transmission Date: 20220424
  Serious: No
  Sender: FDA-Public Use
  Company Number: NVSC2020US339264

PATIENT
  Sex: Female

DRUGS (2)
  1. COSENTYX [Suspect]
     Active Substance: SECUKINUMAB
     Indication: Product used for unknown indication
     Dosage: 300 MG, QMO
     Route: 058
     Dates: end: 202002
  2. COSENTYX [Suspect]
     Active Substance: SECUKINUMAB
     Dosage: 300 MG, QW (RESTARTED WITH LOADING DOSE)
     Route: 058
     Dates: start: 20201214

REACTIONS (3)
  - Maternal exposure during pregnancy [Unknown]
  - Exposure via breast milk [Unknown]
  - Normal newborn [Unknown]
